FAERS Safety Report 4966131-2 (Version None)
Quarter: 2006Q2

REPORT INFORMATION
  Report Type: 
  Country: None (occurrence: None)
  Receive Date: 20060403
  Receipt Date: 20060321
  Transmission Date: 20061013
  Serious: Yes (Other)
  Sender: FDA-Public Use
  Company Number: 2006041159

PATIENT
  Age: 55 Year
  Sex: Male

DRUGS (4)
  1. HYDROCORTISONE SODIUM SUCCINATE [Suspect]
     Indication: HYPERSENSITIVITY
     Dosage: 100 MG, INTRAVENOUS
     Route: 042
  2. CLEMASTINE (CLEMASTINE) [Suspect]
     Indication: HYPERSENSITIVITY
     Dosage: 2 MG, INTRAVENOUS
     Route: 042
  3. ADRENALINE (ADRENALINE) [Suspect]
     Indication: ANAPHYLACTIC REACTION
     Dosage: 1 MG, INTRAVENOUS
     Route: 042
  4. ISOTONIC SOLUTIONS (ISOTONIC SOLUTIONS) [Concomitant]

REACTIONS (6)
  - ANAPHYLACTIC REACTION [None]
  - CORONARY ARTERY STENOSIS [None]
  - DEPRESSED LEVEL OF CONSCIOUSNESS [None]
  - HYPERCHOLESTEROLAEMIA [None]
  - MYOCARDIAL ISCHAEMIA [None]
  - VENTRICULAR HYPOKINESIA [None]
